FAERS Safety Report 25246497 (Version 1)
Quarter: 2025Q2

REPORT INFORMATION
  Report Type: Spontaneous
  Country: US (occurrence: None)
  Receive Date: 20250428
  Receipt Date: 20250428
  Transmission Date: 20250716
  Serious: Yes (Hospitalization)
  Sender: FDA-CTU
  Company Number: None

PATIENT
  Age: 77 Year
  Sex: Male
  Weight: 83.6 kg

DRUGS (4)
  1. AMIODARONE [Suspect]
     Active Substance: AMIODARONE
     Indication: Atrial fibrillation
     Dosage: FREQUENCY : 3 TIMES A DAY;?
     Route: 048
     Dates: start: 20250405, end: 20250409
  2. DOXYCYCLINE [Suspect]
     Active Substance: DOXYCYCLINE
  3. METRONIDAZOLE [Suspect]
     Active Substance: METRONIDAZOLE
  4. METOPROLOL [Suspect]
     Active Substance: METOPROLOL

REACTIONS (4)
  - Asthenia [None]
  - Heart rate increased [None]
  - Alanine aminotransferase increased [None]
  - Aspartate aminotransferase increased [None]

NARRATIVE: CASE EVENT DATE: 20250409
